FAERS Safety Report 15591692 (Version 2)
Quarter: 2019Q3

REPORT INFORMATION
  Report Type: Spontaneous
  Country: US (occurrence: US)
  Receive Date: 20181106
  Receipt Date: 20190809
  Transmission Date: 20191004
  Serious: No
  Sender: FDA-Public Use
  Company Number: US-PFIZER INC-2018441914

PATIENT
  Age: 66 Year
  Sex: Male
  Weight: 90.72 kg

DRUGS (2)
  1. LYRICA [Suspect]
     Active Substance: PREGABALIN
     Indication: PERIPHERAL NERVE INJURY
     Dosage: 75 MG, 1X/DAY
     Route: 048
     Dates: start: 20180929
  2. LYRICA [Suspect]
     Active Substance: PREGABALIN
     Indication: COMPLEX REGIONAL PAIN SYNDROME
     Dosage: 75 MG, 2X/DAY
     Dates: end: 20190701

REACTIONS (7)
  - Mental disorder [Unknown]
  - Therapeutic product effect incomplete [Recovered/Resolved]
  - Panic attack [Unknown]
  - Anxiety [Unknown]
  - Hyperhidrosis [Unknown]
  - Insomnia [Unknown]
  - Intentional product misuse [Unknown]
